FAERS Safety Report 13446964 (Version 1)
Quarter: 2017Q2

REPORT INFORMATION
  Report Type: Spontaneous
  Country: US (occurrence: US)
  Receive Date: 20170417
  Receipt Date: 20170417
  Transmission Date: 20170830
  Serious: No
  Sender: FDA-Public Use
  Company Number: US-PFIZER INC-2017161739

PATIENT
  Age: 39 Year
  Sex: Female

DRUGS (5)
  1. DICYCLOVERINE [Concomitant]
     Active Substance: DICYCLOMINE HYDROCHLORIDE
     Indication: IRRITABLE BOWEL SYNDROME
     Dosage: 25 MG, 2X/DAY
  2. OXYCODONE [Concomitant]
     Active Substance: OXYCODONE
     Dosage: 7.5MG ONCE EVERY 6 HOURS
  3. GABAPENTIN. [Suspect]
     Active Substance: GABAPENTIN
     Indication: NERVE COMPRESSION
     Dosage: 300 MG, 3X/DAY
     Dates: start: 201701
  4. GABAPENTIN. [Suspect]
     Active Substance: GABAPENTIN
     Dosage: 300 MG, 4X/DAY
     Route: 048
     Dates: end: 201703
  5. LEVOTHYROXINE. [Concomitant]
     Active Substance: LEVOTHYROXINE
     Indication: THYROID DISORDER
     Dosage: MAY BE 25, ONCE A DAY

REACTIONS (5)
  - Chest discomfort [Recovered/Resolved]
  - Drug ineffective for unapproved indication [Unknown]
  - Malaise [Unknown]
  - Dyspnoea [Recovering/Resolving]
  - Asthma [Unknown]

NARRATIVE: CASE EVENT DATE: 201703
